FAERS Safety Report 4803065-8 (Version None)
Quarter: 2005Q4

REPORT INFORMATION
  Report Type: 
  Country: None (occurrence: None)
  Receive Date: 20051019
  Receipt Date: 20050928
  Transmission Date: 20060501
  Serious: Yes (Other)
  Sender: FDA-Public Use
  Company Number: DE-GLAXOSMITHKLINE-D0047614A

PATIENT
  Age: 77 Year
  Sex: Male
  Weight: 88 kg

DRUGS (4)
  1. ALKERAN [Suspect]
     Indication: PARAPROTEINAEMIA
     Dosage: 28MG PER DAY
     Route: 042
     Dates: start: 20050613, end: 20050906
  2. PREDNISOLONE [Concomitant]
     Indication: PARAPROTEINAEMIA
     Dosage: 100MG PER DAY
     Route: 050
     Dates: start: 20050613, end: 20050906
  3. ALLOPURINOL [Concomitant]
     Dosage: 300MG PER DAY
     Route: 065
  4. BONDRONAT [Concomitant]
     Indication: PARAPROTEINAEMIA
     Dosage: 6MG PER DAY
     Route: 042
     Dates: start: 20050613, end: 20050906

REACTIONS (3)
  - CONDITION AGGRAVATED [None]
  - INTERSTITIAL LUNG DISEASE [None]
  - LUNG DISORDER [None]
